FAERS Safety Report 20908995 (Version 3)
Quarter: 2022Q3

REPORT INFORMATION
  Report Type: Report from Study
  Country: TR (occurrence: TR)
  Receive Date: 20220603
  Receipt Date: 20220706
  Transmission Date: 20221027
  Serious: Yes (Hospitalization)
  Sender: FDA-Public Use
  Company Number: TR-ABBVIE-22K-161-4419723-00

PATIENT
  Age: 58 Year
  Sex: Male
  Weight: 88 kg

DRUGS (12)
  1. CARBIDOPA\LEVODOPA [Suspect]
     Active Substance: CARBIDOPA\LEVODOPA
     Indication: Parkinson^s disease
     Dosage: MD (ML): 8.00 CD (ML): 3.90 EXTRA DOSE (ML): 1.00
     Route: 050
     Dates: start: 20201021
  2. CARBIDOPA\LEVODOPA [Suspect]
     Active Substance: CARBIDOPA\LEVODOPA
  3. BISOPROLOL FUMARATE [Concomitant]
     Active Substance: BISOPROLOL FUMARATE
     Indication: Hypertension
     Dosage: UNKNOWN
     Route: 048
  4. CLONEX [Concomitant]
     Indication: Antidepressant therapy
     Dosage: UNKNOWN
     Route: 048
  5. LUSTRAL [Concomitant]
     Active Substance: SERTRALINE HYDROCHLORIDE
     Indication: Antidepressant therapy
     Dosage: UNKNOWN
     Route: 048
  6. COLNAR [Concomitant]
     Indication: Blood cholesterol
     Dosage: UNKNOWN
     Route: 048
  7. DESYREL [Concomitant]
     Active Substance: TRAZODONE HYDROCHLORIDE
     Indication: Antidepressant therapy
     Dosage: UNKNOWN
     Route: 048
  8. HYDROCHLOROTHIAZIDE\ZOFENOPRIL [Concomitant]
     Active Substance: HYDROCHLOROTHIAZIDE\ZOFENOPRIL
     Indication: Hypertension
     Dosage: UNKNOWN
     Route: 048
  9. ASPIRIN [Concomitant]
     Active Substance: ASPIRIN
     Indication: Antiplatelet therapy
     Dosage: UNKNOWN
     Route: 048
  10. FOLIC ACID [Concomitant]
     Active Substance: FOLIC ACID
     Indication: Vitamin supplementation
     Dosage: UNKNOWN
     Route: 048
  11. RIVOCLON [Concomitant]
     Indication: Cerebral vascular occlusion
     Dosage: UNKNOWN
     Route: 048
  12. BENSERAZIDE HYDROCHLORIDE\LEVODOPA [Concomitant]
     Active Substance: BENSERAZIDE HYDROCHLORIDE\LEVODOPA
     Indication: Parkinson^s disease
     Dosage: UNKNOWN
     Route: 048

REACTIONS (3)
  - Hypophagia [Recovered/Resolved]
  - Weight decreased [Recovered/Resolved]
  - Decreased appetite [Recovered/Resolved]

NARRATIVE: CASE EVENT DATE: 20220501
